FAERS Safety Report 5335454-X (Version None)
Quarter: 2007Q2

REPORT INFORMATION
  Report Type: 
  Country: None (occurrence: None)
  Receive Date: 20070525
  Receipt Date: 20070515
  Transmission Date: 20071010
  Serious: Yes (Other)
  Sender: FDA-Public Use
  Company Number: US-PFIZER INC-2007040285

PATIENT
  Sex: Female
  Weight: 72.727 kg

DRUGS (2)
  1. LYRICA [Suspect]
     Indication: PAIN
     Dates: start: 20061201, end: 20061201
  2. LISINOPRIL [Concomitant]

REACTIONS (2)
  - BLISTER [None]
  - OEDEMA PERIPHERAL [None]
